FAERS Safety Report 6572184-0 (Version None)
Quarter: 2010Q1

REPORT INFORMATION
  Report Type: 
  Country: None (occurrence: None)
  Receive Date: 20100205
  Receipt Date: 20100129
  Transmission Date: 20100710
  Serious: Yes (Other)
  Sender: FDA-Public Use
  Company Number: B0631437A

PATIENT
  Age: 42 Year
  Sex: Male

DRUGS (6)
  1. LAMICTAL [Suspect]
     Indication: EPILEPSY
     Route: 065
     Dates: start: 20090901
  2. UNKNOWN DRUG [Concomitant]
     Route: 065
  3. GINKO BILOBA [Concomitant]
     Route: 065
  4. HEPTAMINOL [Concomitant]
     Route: 065
  5. TROXERUTIN [Concomitant]
     Route: 065
  6. UNKNOWN DRUG [Concomitant]
     Route: 065

REACTIONS (5)
  - CONVULSION [None]
  - GASTROINTESTINAL HYPERMOTILITY [None]
  - HEADACHE [None]
  - TIC [None]
  - TREMOR [None]
